FAERS Safety Report 4515491-5 (Version None)
Quarter: 2004Q4

REPORT INFORMATION
  Report Type: 
  Country: None (occurrence: None)
  Receive Date: 20041126
  Receipt Date: 20041118
  Transmission Date: 20050328
  Serious: Yes (Other)
  Sender: FDA-Public Use
  Company Number: US-JNJFOC-20041105156

PATIENT
  Age: 8 Year
  Sex: Female
  Weight: 68.4932 kg

DRUGS (1)
  1. TYLENOL 8 HOUR EXTENDED RELEASE (ACETAMINOPHEN) CELTABS [Suspect]
     Indication: PAIN
     Dosage: 650 MG, 1 IN 1 DAY
     Dates: start: 20041118, end: 20041118

REACTIONS (3)
  - CHEST DISCOMFORT [None]
  - DYSPNOEA [None]
  - ERYTHEMA [None]
